FAERS Safety Report 23728254 (Version 1)
Quarter: 2024Q2

REPORT INFORMATION
  Report Type: Spontaneous
  Country: US (occurrence: None)
  Receive Date: 20240410
  Receipt Date: 20240410
  Transmission Date: 20240715
  Serious: No
  Sender: FDA-Public Use
  Company Number: None

PATIENT

DRUGS (4)
  1. NOVOLOG [Suspect]
     Active Substance: INSULIN ASPART
  2. LANTUS [Suspect]
     Active Substance: INSULIN GLARGINE
  3. TRESIBA [Suspect]
     Active Substance: INSULIN DEGLUDEC
  4. BASAGLAR [Suspect]
     Active Substance: INSULIN GLARGINE

REACTIONS (2)
  - Product prescribing error [None]
  - Wrong product administered [None]
